FAERS Safety Report 6128410-5 (Version None)
Quarter: 2009Q1

REPORT INFORMATION
  Report Type: 
  Country: None (occurrence: None)
  Receive Date: 20090323
  Receipt Date: 20090309
  Transmission Date: 20090719
  Serious: Yes (Hospitalization)
  Sender: FDA-Public Use
  Company Number: NL-ROCHE-620627

PATIENT
  Weight: 68.2 kg

DRUGS (9)
  1. CAPECITABINE [Suspect]
     Route: 065
  2. EPIRUBICIN [Suspect]
     Route: 065
  3. CISPLATIN [Suspect]
     Route: 065
  4. OMEPRAZOLE [Concomitant]
     Route: 048
  5. OXYCONTIN [Concomitant]
     Route: 048
  6. ACETAMINOPHEN [Concomitant]
     Dosage: FREQUENCY: 2X4
     Route: 048
  7. CILAXORAL [Concomitant]
     Dosage: DOSE: 7.5 MG/ML
  8. OXASCAND [Concomitant]
  9. OXYNORM [Concomitant]

REACTIONS (3)
  - C-REACTIVE PROTEIN INCREASED [None]
  - CHILLS [None]
  - WHITE BLOOD CELL COUNT INCREASED [None]
